FAERS Safety Report 9331413 (Version 1)
Quarter: 2013Q2

REPORT INFORMATION
  Report Type: Report from Study
  Country: CA (occurrence: CA)
  Receive Date: 20130605
  Receipt Date: 20130605
  Transmission Date: 20140414
  Serious: Yes (Other)
  Sender: FDA-Public Use
  Company Number: CA-ABBOTT-13P-028-1050963-00

PATIENT
  Sex: Female
  Weight: 66.6 kg

DRUGS (1)
  1. HUMIRA [Suspect]
     Indication: CROHN^S DISEASE
     Route: 058
     Dates: start: 20110210

REACTIONS (5)
  - Hypoaesthesia [Unknown]
  - White matter lesion [Unknown]
  - Paraesthesia [Unknown]
  - Multiple sclerosis [Unknown]
  - Hypertension [Unknown]
